FAERS Safety Report 22242848 (Version 1)
Quarter: 2023Q2

REPORT INFORMATION
  Report Type: Spontaneous
  Country: RU (occurrence: None)
  Receive Date: 20230424
  Receipt Date: 20230424
  Transmission Date: 20230721
  Serious: Yes (Death, Life-Threatening, Hospitalization, Other)
  Sender: FDA-Public Use
  Company Number: 2023A094359

PATIENT
  Age: 34 Year
  Sex: Male

DRUGS (1)
  1. ANIFROLUMAB [Suspect]
     Active Substance: ANIFROLUMAB
     Indication: Systemic lupus erythematosus
     Route: 041
     Dates: start: 20230227, end: 20230227

REACTIONS (4)
  - Cardiac fibrillation [Fatal]
  - Angioedema [Unknown]
  - Nephropathy toxic [Fatal]
  - Renal failure [Fatal]

NARRATIVE: CASE EVENT DATE: 20230320
